FAERS Safety Report 5355931-5 (Version None)
Quarter: 2007Q2

REPORT INFORMATION
  Report Type: 
  Country: None (occurrence: None)
  Receive Date: 20070613
  Receipt Date: 20070604
  Transmission Date: 20071010
  Serious: Yes (Hospitalization)
  Sender: FDA-Public Use
  Company Number: DE-ABBOTT-07P-062-0370626-00

PATIENT
  Sex: Male

DRUGS (1)
  1. HUMIRA [Suspect]
     Indication: ANKYLOSING SPONDYLITIS

REACTIONS (5)
  - ANAEMIA [None]
  - ASTHENIA [None]
  - FATIGUE [None]
  - LABORATORY TEST ABNORMAL [None]
  - MYELOFIBROSIS [None]
